FAERS Safety Report 9478040 (Version 2)
Quarter: 2013Q4

REPORT INFORMATION
  Report Type: Report from Study
  Country: BR (occurrence: BR)
  Receive Date: 20130827
  Receipt Date: 20131118
  Transmission Date: 20140711
  Serious: Yes (Other)
  Sender: FDA-Public Use
  Company Number: PHHY2013BR092415

PATIENT
  Age: 80 Year
  Sex: Female

DRUGS (9)
  1. EXELON PATCH [Suspect]
     Indication: DEMENTIA ALZHEIMER^S TYPE
     Dosage: 9.5 MG, (ONE 18 MG/10 CM2 PATCH)
     Route: 062
  2. EXELON PATCH [Suspect]
     Dosage: 13.3 MG ( ONE 27 MG/15 CM2 PATCH)
     Route: 062
  3. LASIX [Concomitant]
     Dosage: UNK UKN, UNK
  4. PANTOPRAZOLE [Concomitant]
     Indication: ABDOMINAL PAIN UPPER
     Dosage: UNK UKN, UNK
  5. ALOIS [Concomitant]
     Dosage: UNK UKN, UNK
  6. DONAREN [Concomitant]
     Dosage: UNK UKN, UNK
  7. ESPIRONOLACTONA [Concomitant]
     Dosage: UNK UKN, UNK
  8. ACTOS [Concomitant]
     Indication: DIABETES MELLITUS
     Dosage: UNK UKN, UNK
  9. VASATIV [Concomitant]
     Indication: CARDIOVASCULAR DISORDER
     Dosage: 1 DF, DAILY
     Route: 048

REACTIONS (6)
  - Skin ulcer [Recovering/Resolving]
  - Fall [Recovered/Resolved]
  - Gait disturbance [Not Recovered/Not Resolved]
  - Pain in extremity [Recovering/Resolving]
  - Weight decreased [Not Recovered/Not Resolved]
  - Aggression [Unknown]
